FAERS Safety Report 6054918-7 (Version None)
Quarter: 2009Q1

REPORT INFORMATION
  Report Type: 
  Country: None (occurrence: None)
  Receive Date: 20090128
  Receipt Date: 20090120
  Transmission Date: 20090719
  Serious: Yes (Hospitalization, Other)
  Sender: FDA-Public Use
  Company Number: PHHY2008CA11575

PATIENT
  Sex: Male

DRUGS (2)
  1. SANDOSTATIN LAR [Suspect]
     Indication: CARCINOID SYNDROME
     Dosage: 30 MG EVERY 4 WEEKS
     Route: 030
     Dates: start: 20071203
  2. NT 60 [Suspect]

REACTIONS (12)
  - AMNESIA [None]
  - BLOOD PRESSURE DECREASED [None]
  - DIZZINESS [None]
  - DYSPNOEA [None]
  - ENDOSCOPY UPPER GASTROINTESTINAL TRACT [None]
  - ENEMA ADMINISTRATION [None]
  - FALL [None]
  - FREQUENT BOWEL MOVEMENTS [None]
  - GASTROINTESTINAL PAIN [None]
  - HEART RATE DECREASED [None]
  - INTESTINAL OBSTRUCTION [None]
  - PAIN [None]
